FAERS Safety Report 11869730 (Version 1)
Quarter: 2015Q4

REPORT INFORMATION
  Report Type: Spontaneous
  Country: US (occurrence: US)
  Receive Date: 20151228
  Receipt Date: 20151228
  Transmission Date: 20160305
  Serious: Yes (Other)
  Sender: FDA-Public Use
  Company Number: US-JNJFOC-20151214927

PATIENT
  Age: 58 Year
  Sex: Female
  Weight: 70.31 kg

DRUGS (4)
  1. ZYRTEC [Suspect]
     Active Substance: CETIRIZINE HYDROCHLORIDE
     Indication: PRODUCT USED FOR UNKNOWN INDICATION
     Route: 065
  2. LYRICA [Suspect]
     Active Substance: PREGABALIN
     Indication: PRODUCT USED FOR UNKNOWN INDICATION
     Dosage: PROBABLY ONE 3-4 WEEKS
     Route: 065
  3. ZYRTEC [Suspect]
     Active Substance: CETIRIZINE HYDROCHLORIDE
     Route: 065
  4. NEURONTIN [Suspect]
     Active Substance: GABAPENTIN
     Indication: PAIN
     Dosage: PROBABLY 3 YEARS OR SO
     Route: 065

REACTIONS (4)
  - Cardiac operation [Unknown]
  - Intentional underdose [None]
  - Drug ineffective [None]
  - Inability to afford medication [None]

NARRATIVE: CASE EVENT DATE: 201406
